FAERS Safety Report 7466351-1 (Version None)
Quarter: 2011Q2

REPORT INFORMATION
  Report Type: 
  Country: None (occurrence: None)
  Receive Date: 20110509
  Receipt Date: 20100804
  Transmission Date: 20111010
  Serious: No
  Sender: FDA-Public Use
  Company Number: US-ALEXION-A201000930

PATIENT
  Sex: Female

DRUGS (7)
  1. FOLIC ACID [Concomitant]
     Indication: PAROXYSMAL NOCTURNAL HAEMOGLOBINURIA
     Dosage: UNK
     Route: 048
  2. SINGULAIR [Concomitant]
     Dosage: UNK
     Route: 048
  3. LEVOTHYROXINE SODIUM [Concomitant]
     Indication: THYROID HORMONE REPLACEMENT THERAPY
     Dosage: UNK
     Route: 048
  4. MULTI-VITAMINS [Concomitant]
     Dosage: UNK
     Route: 048
  5. SOLIRIS [Suspect]
     Dosage: 900 MG, Q2W
     Route: 042
  6. SOLIRIS [Suspect]
     Indication: PAROXYSMAL NOCTURNAL HAEMOGLOBINURIA
     Dosage: 600 MG, QW
     Route: 042
     Dates: start: 20100324, end: 20100414
  7. PROTONIX [Concomitant]
     Dosage: UNK
     Route: 048

REACTIONS (2)
  - BLOOD LACTATE DEHYDROGENASE INCREASED [None]
  - STRESS [None]
